FAERS Safety Report 9640414 (Version 1)
Quarter: 2013Q4

REPORT INFORMATION
  Report Type: Spontaneous
  Country: GB (occurrence: GB)
  Receive Date: 20131023
  Receipt Date: 20131023
  Transmission Date: 20140711
  Serious: Yes (Disabling)
  Sender: FDA-Public Use
  Company Number: GB-SA-2013SA105500

PATIENT
  Age: 52 Year
  Sex: 0
  Weight: 54 kg

DRUGS (1)
  1. DRONEDARONE [Suspect]
     Indication: ATRIAL FIBRILLATION
     Route: 048

REACTIONS (2)
  - Myalgia [Not Recovered/Not Resolved]
  - Bursitis [Not Recovered/Not Resolved]
